FAERS Safety Report 17640357 (Version 1)
Quarter: 2020Q2

REPORT INFORMATION
  Report Type: Spontaneous
  Country: US (occurrence: US)
  Receive Date: 20200408
  Receipt Date: 20200408
  Transmission Date: 20200713
  Serious: No
  Sender: FDA-Public Use
  Company Number: US-BEH-2020115436

PATIENT
  Sex: Female

DRUGS (4)
  1. ACETAMINOPHEN. [Concomitant]
     Active Substance: ACETAMINOPHEN
     Indication: PREMEDICATION
     Dosage: 650 MILLIGRAM
     Route: 065
     Dates: start: 20200309
  2. BENADRYL 24 D [Concomitant]
     Active Substance: LORATADINE\PSEUDOEPHEDRINE SULFATE
     Indication: PREMEDICATION
     Dosage: 50 MILLIGRAM
     Route: 065
     Dates: start: 20200207
  3. PRIVIGEN [Suspect]
     Active Substance: HUMAN IMMUNOGLOBULIN G
     Indication: SELECTIVE IGG SUBCLASS DEFICIENCY
     Dosage: 30 GRAM, EVERY 28 DAYS
     Route: 042
     Dates: start: 20200207
  4. PREDNISONE. [Concomitant]
     Active Substance: PREDNISONE
     Indication: PREMEDICATION
     Dosage: 20 MILLIGRAM
     Route: 065
     Dates: start: 20200306

REACTIONS (11)
  - Malaise [Not Recovered/Not Resolved]
  - Hypersensitivity [Not Recovered/Not Resolved]
  - Pyrexia [Not Recovered/Not Resolved]
  - Urticaria [Not Recovered/Not Resolved]
  - Arthralgia [Not Recovered/Not Resolved]
  - Nausea [Unknown]
  - Asthenia [Unknown]
  - Oedema peripheral [Not Recovered/Not Resolved]
  - Blood pressure increased [Not Recovered/Not Resolved]
  - Rash [Not Recovered/Not Resolved]
  - Pain in extremity [Not Recovered/Not Resolved]

NARRATIVE: CASE EVENT DATE: 202002
